FAERS Safety Report 9881968 (Version 1)
Quarter: 2014Q1

REPORT INFORMATION
  Report Type: Spontaneous
  Country: US (occurrence: US)
  Receive Date: 20140207
  Receipt Date: 20140207
  Transmission Date: 20141002
  Serious: No
  Sender: FDA-Public Use
  Company Number: US-GILEAD-2014-0093853

PATIENT
  Age: 40 Year
  Sex: Female

DRUGS (3)
  1. LETAIRIS [Suspect]
     Indication: PRODUCT USED FOR UNKNOWN INDICATION
     Dosage: 10 MG, UNK
     Route: 065
     Dates: start: 20120320
  2. ADCIRCA [Concomitant]
     Dosage: 20 MG, UNK
  3. LASIX                              /00032601/ [Concomitant]
     Dosage: 40 MG, UNK

REACTIONS (1)
  - Pharyngitis [Recovering/Resolving]
